FAERS Safety Report 7809443-7 (Version None)
Quarter: 2011Q4

REPORT INFORMATION
  Report Type: 
  Country: None (occurrence: None)
  Receive Date: 20111012
  Receipt Date: 20110926
  Transmission Date: 20120403
  Serious: Yes (Other)
  Sender: FDA-Public Use
  Company Number: FI-ROCHE-802553

PATIENT
  Sex: Male

DRUGS (11)
  1. ACID FOLIC [Concomitant]
  2. MABTHERA [Suspect]
  3. TREXAN (FINLAND) [Concomitant]
     Dates: end: 20100823
  4. MYCOPHENOLATE MOFETIL (CELLCEPT) [Concomitant]
  5. PLAVIX [Concomitant]
  6. ACETYLSALICYLIC ACID [Concomitant]
  7. ANTIHISTAMINE NOS [Concomitant]
  8. PREDNISOLONE [Concomitant]
  9. MABTHERA [Suspect]
     Indication: SYSTEMIC LUPUS ERYTHEMATOSUS
     Dosage: 375 MG/M2 LATER 500 MG
     Route: 042
  10. OXIKLORIN [Concomitant]
  11. ENOXAPARIN SODIUM [Concomitant]

REACTIONS (4)
  - HYPOTENSION [None]
  - OSTEONECROSIS [None]
  - SINUSITIS [None]
  - URTICARIA [None]
